FAERS Safety Report 7306654-4 (Version None)
Quarter: 2011Q1

REPORT INFORMATION
  Report Type: 
  Country: None (occurrence: None)
  Receive Date: 20110209
  Receipt Date: 20110128
  Transmission Date: 20110831
  Serious: Yes (Hospitalization)
  Sender: FDA-Public Use
  Company Number: CA-004631

PATIENT
  Sex: Male

DRUGS (7)
  1. FIRMAGON [Suspect]
     Indication: PROSTATE CANCER
     Dosage: (80 MG 1X/MONTH SUBCUTANEOUS)
     Route: 058
     Dates: start: 20101220
  2. VITAMIN A [Concomitant]
  3. LIPITOR [Concomitant]
  4. AMATINE [Concomitant]
  5. CALCIUM [Concomitant]
  6. NEXIUM [Concomitant]
  7. TYLENOL (CAPLET) [Concomitant]

REACTIONS (4)
  - HYPOTENSION [None]
  - CEREBROVASCULAR ACCIDENT [None]
  - DIZZINESS POSTURAL [None]
  - FEELING ABNORMAL [None]
